FAERS Safety Report 8281801-9 (Version None)
Quarter: 2012Q2

REPORT INFORMATION
  Report Type: 
  Country: None (occurrence: None)
  Receive Date: 20120413
  Receipt Date: 20120405
  Transmission Date: 20120825
  Serious: Yes (Other)
  Sender: FDA-Public Use
  Company Number: PHEH2012US004525

PATIENT
  Sex: Male
  Weight: 88.5 kg

DRUGS (19)
  1. GLEEVEC [Suspect]
     Dosage: 600 MG, DAILY
     Route: 048
  2. GLEEVEC [Suspect]
     Dosage: 400 MG, BID
  3. COENZYME Q10 [Concomitant]
     Dosage: 200 MG, DAILY
     Route: 048
  4. COENZYME Q10 [Concomitant]
     Dosage: 200 MG, DAILY
     Route: 048
  5. FLOMAX [Concomitant]
     Dosage: 0.4 MG, QHS
     Dates: start: 20120114
  6. MELATONIN [Concomitant]
     Dosage: 5 MG, QHS
     Route: 048
  7. PROBIOTICS [Concomitant]
     Dosage: UNK UKN, DAILY
     Route: 048
  8. VITAMIN D [Concomitant]
     Dosage: 4000 IU, DAILY
     Route: 048
  9. SUNITINIB MALATE [Concomitant]
     Dosage: 37.5 MG, DAILY 4 WEEKS ON 2 WEEKS OFF
     Route: 048
     Dates: start: 20110913
  10. MARINOL [Concomitant]
     Dosage: 5 MG,DAILY
     Route: 048
  11. OMEPRAZOLE [Concomitant]
     Dosage: 20 MG, DAILY
     Route: 048
  12. GLEEVEC [Suspect]
     Dosage: 700 MG, DAILY
     Route: 048
     Dates: start: 20120118
  13. ZOFRAN [Concomitant]
     Dosage: 8 MG, BID
     Route: 048
  14. LOVAZA [Concomitant]
     Dosage: UNK UKN, DAILY
  15. ASCORBIC ACID [Concomitant]
     Dosage: 1000 MG, DAILY
     Route: 048
  16. PERCOCET [Concomitant]
     Dosage: 3/325 MG,PRN
     Route: 048
  17. ALBUTEROL SULFATE [Concomitant]
     Dosage: 2.5 MG, PRN
  18. GLEEVEC [Suspect]
     Indication: GASTROINTESTINAL STROMAL TUMOUR
     Dosage: 400 MG, BID
     Route: 048
     Dates: start: 20110701
  19. IBUPROFEN [Concomitant]
     Dosage: 400 MG, PRN
     Route: 048

REACTIONS (2)
  - ASTHENIA [None]
  - EYELID PTOSIS [None]
